FAERS Safety Report 17974495 (Version 5)
Quarter: 2021Q3

REPORT INFORMATION
  Report Type: Spontaneous
  Country: US (occurrence: US)
  Receive Date: 20200702
  Receipt Date: 20210824
  Transmission Date: 20211014
  Serious: Yes (Other)
  Sender: FDA-Public Use
  Company Number: US-PFIZER INC-2020252881

PATIENT
  Age: 62 Year
  Sex: Female

DRUGS (4)
  1. XELJANZ XR [Suspect]
     Active Substance: TOFACITINIB CITRATE
     Dosage: 11 MG
     Dates: start: 20210101, end: 2021
  2. XELJANZ XR [Suspect]
     Active Substance: TOFACITINIB CITRATE
     Indication: RHEUMATOID ARTHRITIS
     Dosage: 11 MG, 1X/DAY
     Route: 048
     Dates: start: 202003
  3. MELOXICAM. [Concomitant]
     Active Substance: MELOXICAM
     Indication: PAIN
     Dosage: UNK, AS NEEDED
  4. XELJANZ XR [Suspect]
     Active Substance: TOFACITINIB CITRATE
     Dosage: 11 MG
     Dates: start: 20200401

REACTIONS (14)
  - Blood cholesterol increased [Unknown]
  - Feeling abnormal [Recovered/Resolved]
  - Pain in extremity [Unknown]
  - Gastrointestinal disorder [Recovered/Resolved]
  - Fall [Unknown]
  - Headache [Recovered/Resolved]
  - Discouragement [Unknown]
  - Constipation [Unknown]
  - Foot deformity [Unknown]
  - Rib fracture [Unknown]
  - Skin infection [Unknown]
  - Abdominal discomfort [Recovered/Resolved]
  - Depression [Unknown]
  - Basal cell carcinoma [Unknown]

NARRATIVE: CASE EVENT DATE: 2020
